FAERS Safety Report 14986325 (Version 1)
Quarter: 2018Q2

REPORT INFORMATION
  Report Type: Spontaneous
  Country: US (occurrence: US)
  Receive Date: 20180607
  Receipt Date: 20180607
  Transmission Date: 20180711
  Serious: No
  Sender: FDA-Public Use
  Company Number: US-TEIKOKU PHARMA USA-TPU2018-00369

PATIENT
  Sex: Female
  Weight: 78.09 kg

DRUGS (1)
  1. LIDOCAINE PATCH [Suspect]
     Active Substance: LIDOCAINE
     Indication: NEUROPATHY PERIPHERAL
     Dosage: UP TO 4 PATCHES. ONE PATCH ON THE BOTTOM OF EACH FOOT AND ONE PATCH ON THE TOP OF EACH FOOT.
     Route: 061

REACTIONS (3)
  - Drug ineffective for unapproved indication [Unknown]
  - Gait inability [Not Recovered/Not Resolved]
  - Incorrect dose administered [Unknown]
